FAERS Safety Report 6942217-8 (Version None)
Quarter: 2010Q3

REPORT INFORMATION
  Report Type: 
  Country: None (occurrence: None)
  Receive Date: 20100826
  Receipt Date: 20100823
  Transmission Date: 20110219
  Serious: Yes (Other)
  Sender: FDA-Public Use
  Company Number: DE-SANOFI-AVENTIS-2010SA050121

PATIENT
  Sex: Male

DRUGS (1)
  1. TELFAST [Suspect]
     Route: 048

REACTIONS (2)
  - LIVER DISORDER [None]
  - SPLEEN DISORDER [None]
